FAERS Safety Report 5672730-5 (Version None)
Quarter: 2008Q1

REPORT INFORMATION
  Report Type: 
  Country: None (occurrence: None)
  Receive Date: 20080319
  Receipt Date: 20070306
  Transmission Date: 20080703
  Serious: No
  Sender: FDA-Public Use
  Company Number: US-KINGPHARMUSA00001-K200700259

PATIENT

DRUGS (2)
  1. ALTACE [Suspect]
     Dates: start: 20050101, end: 20061201
  2. ENALAPRIL MALEATE [Suspect]

REACTIONS (2)
  - DEHYDRATION [None]
  - POLLAKIURIA [None]
